FAERS Safety Report 22345561 (Version 1)
Quarter: 2023Q2

REPORT INFORMATION
  Report Type: Spontaneous
  Country: PL (occurrence: PL)
  Receive Date: 20230519
  Receipt Date: 20230519
  Transmission Date: 20230722
  Serious: Yes (Other)
  Sender: FDA-Public Use
  Company Number: PL-BRISTOL-MYERS SQUIBB COMPANY-2023-070113

PATIENT
  Age: 37 Year
  Sex: Male

DRUGS (6)
  1. OPDIVO [Suspect]
     Active Substance: NIVOLUMAB
     Indication: Malignant melanoma
     Dates: start: 20201201
  2. OPDIVO [Suspect]
     Active Substance: NIVOLUMAB
     Dates: start: 20210215
  3. OPDIVO [Suspect]
     Active Substance: NIVOLUMAB
     Dates: start: 20210505
  4. YERVOY [Suspect]
     Active Substance: IPILIMUMAB
     Indication: Malignant melanoma
     Dates: start: 20201201
  5. YERVOY [Suspect]
     Active Substance: IPILIMUMAB
     Dates: start: 20210215
  6. PREDNISONE [Concomitant]
     Active Substance: PREDNISONE
     Indication: Product used for unknown indication
     Dates: start: 20210215

REACTIONS (3)
  - Tumour pseudoprogression [Unknown]
  - Immune-mediated lung disease [Unknown]
  - COVID-19 pneumonia [Unknown]

NARRATIVE: CASE EVENT DATE: 20201201
